FAERS Safety Report 8303315-X (Version None)
Quarter: 2012Q2

REPORT INFORMATION
  Report Type: 
  Country: None (occurrence: None)
  Receive Date: 20120423
  Receipt Date: 20120416
  Transmission Date: 20120825
  Serious: No
  Sender: FDA-Public Use
  Company Number: US-BIOGENIDEC-2012BI013362

PATIENT
  Age: 65 Year
  Sex: Female

DRUGS (1)
  1. TYSABRI [Suspect]
     Indication: MULTIPLE SCLEROSIS
     Route: 042
     Dates: start: 20110811, end: 20111212

REACTIONS (5)
  - HYPOAESTHESIA [None]
  - MUSCLE TIGHTNESS [None]
  - ARTHRITIS [None]
  - COORDINATION ABNORMAL [None]
  - OEDEMA PERIPHERAL [None]
